FAERS Safety Report 5006882-7 (Version None)
Quarter: 2006Q2

REPORT INFORMATION
  Report Type: 
  Country: None (occurrence: None)
  Receive Date: 20060517
  Receipt Date: 20060511
  Transmission Date: 20061013
  Serious: Yes (Other)
  Sender: FDA-Public Use
  Company Number: S06-USA-01833-01

PATIENT

DRUGS (2)
  1. CAMPRAL [Suspect]
  2. MULITPLE MEDICATIONS (NOS) [Concomitant]

REACTIONS (2)
  - EYE HAEMORRHAGE [None]
  - VOMITING [None]
